FAERS Safety Report 5502755-1 (Version None)
Quarter: 2007Q4

REPORT INFORMATION
  Report Type: 
  Country: None (occurrence: None)
  Receive Date: 20071031
  Receipt Date: 20071024
  Transmission Date: 20080405
  Serious: Yes (Other)
  Sender: FDA-Public Use
  Company Number: US-JNJFOC-20071006277

PATIENT
  Age: 45 Year
  Sex: Female
  Weight: 77.11 kg

DRUGS (2)
  1. TYLENOL (CAPLET) [Suspect]
     Route: 048
  2. TYLENOL (CAPLET) [Suspect]
     Indication: NERVE COMPRESSION
     Route: 048

REACTIONS (1)
  - FOREIGN BODY TRAUMA [None]
